FAERS Safety Report 10978828 (Version 2)
Quarter: 2015Q2

REPORT INFORMATION
  Report Type: Report from Study
  Country: LB (occurrence: LB)
  Receive Date: 20150402
  Receipt Date: 20150526
  Transmission Date: 20150821
  Serious: Yes (Life-Threatening, Hospitalization)
  Sender: FDA-Public Use
  Company Number: LB-ABBVIE-15K-093-1367678-00

PATIENT
  Age: 31 Year
  Sex: Male
  Weight: 82 kg

DRUGS (2)
  1. HUMIRA [Suspect]
     Active Substance: ADALIMUMAB
     Indication: CROHN^S DISEASE
     Dosage: LOADING DOSE
     Route: 058
     Dates: start: 20130213, end: 20130213
  2. HUMIRA [Suspect]
     Active Substance: ADALIMUMAB
     Route: 058
     Dates: end: 20150308

REACTIONS (9)
  - Skin infection [Unknown]
  - Gastrointestinal infection [Recovered/Resolved]
  - Purulence [Unknown]
  - Chills [Recovered/Resolved]
  - Night sweats [Recovered/Resolved]
  - Pyrexia [Unknown]
  - Abdominal distension [Recovered/Resolved]
  - Colectomy [Unknown]
  - Pyrexia [Recovered/Resolved]

NARRATIVE: CASE EVENT DATE: 20150320
